FAERS Safety Report 8434669-1 (Version None)
Quarter: 2012Q2

REPORT INFORMATION
  Report Type: 
  Country: None (occurrence: None)
  Receive Date: 20120323
  Receipt Date: 20110711
  Transmission Date: 20120825
  Serious: Yes (Hospitalization)
  Sender: FDA-Public Use
  Company Number: 163-21880-11071120

PATIENT
  Age: 72 Year
  Sex: Female

DRUGS (7)
  1. ZOMETA [Concomitant]
  2. LASIX [Concomitant]
  3. REVLIMID [Suspect]
     Indication: MULTIPLE MYELOMA
     Dosage: 25 MG, 1 IN 1 D, PO; 15 MG, 21/28 DAYS, PO
     Route: 048
     Dates: start: 20110601
  4. REVLIMID [Suspect]
     Indication: MULTIPLE MYELOMA
     Dosage: 25 MG, 1 IN 1 D, PO; 15 MG, 21/28 DAYS, PO
     Route: 048
     Dates: start: 20110505, end: 20110531
  5. IMMUNE GLOBULIN INTRAVENOUS (HUMAN) [Concomitant]
  6. ASPIRIN [Concomitant]
  7. METOPROLOL TARTRATE [Concomitant]

REACTIONS (2)
  - BRONCHITIS [None]
  - PYREXIA [None]
